FAERS Safety Report 7883801-7 (Version None)
Quarter: 2011Q4

REPORT INFORMATION
  Report Type: 
  Country: None (occurrence: None)
  Receive Date: 20111102
  Receipt Date: 20111020
  Transmission Date: 20120403
  Serious: Yes (Hospitalization)
  Sender: FDA-Public Use
  Company Number: FR-SANOFI-AVENTIS-2011SA070989

PATIENT
  Age: 79 Year
  Sex: Male
  Weight: 73 kg

DRUGS (4)
  1. ACETAMINOPHEN AND TRAMADOL HCL [Concomitant]
  2. ELIGARD [Suspect]
     Indication: PROSTATE CANCER
     Route: 058
     Dates: start: 20061109
  3. SOTALOL HCL [Concomitant]
     Dates: start: 20070423
  4. DICLOFENAC SODIUM [Concomitant]
     Dates: start: 20061002

REACTIONS (2)
  - ABDOMINAL PAIN [None]
  - CHEST PAIN [None]
